FAERS Safety Report 6455167-0 (Version None)
Quarter: 2009Q4

REPORT INFORMATION
  Report Type: 
  Country: None (occurrence: None)
  Receive Date: 20091124
  Receipt Date: 20091120
  Transmission Date: 20100525
  Serious: Yes (Death)
  Sender: FDA-Public Use
  Company Number: US-GILEAD-2009-0024507

PATIENT
  Sex: Male

DRUGS (9)
  1. LETAIRIS [Suspect]
     Indication: PULMONARY ARTERIAL HYPERTENSION
     Route: 048
     Dates: start: 20090904
  2. AMLODIPINE [Concomitant]
  3. PLAVIX [Concomitant]
  4. THEOPHYLLINE [Concomitant]
  5. ALBUTEROL [Concomitant]
  6. GLIMEPIRIDE [Concomitant]
  7. ACTOS [Concomitant]
  8. FEXOFENADINE [Concomitant]
  9. BABY ASPIRIN [Concomitant]

REACTIONS (1)
  - DEATH [None]
